FAERS Safety Report 24954109 (Version 1)
Quarter: 2025Q1

REPORT INFORMATION
  Report Type: Spontaneous
  Country: FR (occurrence: FR)
  Receive Date: 20250211
  Receipt Date: 20250211
  Transmission Date: 20250408
  Serious: Yes (Hospitalization, Other)
  Sender: RANBAXY
  Company Number: FR-SUN PHARMACEUTICAL INDUSTRIES LTD-2025RR-493686

PATIENT
  Age: 75 Year
  Sex: Male

DRUGS (3)
  1. AMIODARONE [Suspect]
     Active Substance: AMIODARONE
     Indication: Atrial fibrillation
     Dosage: 200 MILLIGRAM, DAILY
     Route: 048
     Dates: start: 2021, end: 20240930
  2. LENALIDOMIDE [Suspect]
     Active Substance: LENALIDOMIDE
     Indication: Lymphoma
     Dosage: 20 MILLIGRAM, DAILY
     Route: 048
     Dates: start: 202403
  3. LUNSUMIO [Concomitant]
     Active Substance: MOSUNETUZUMAB-AXGB
     Indication: Lymphoma
     Dosage: 30 MILLIGRAM, DAILY
     Route: 040
     Dates: start: 202403

REACTIONS (1)
  - Hyperthyroidism [Recovering/Resolving]

NARRATIVE: CASE EVENT DATE: 20240930
